FAERS Safety Report 8381886-5 (Version None)
Quarter: 2012Q2

REPORT INFORMATION
  Report Type: 
  Country: None (occurrence: None)
  Receive Date: 20120523
  Receipt Date: 20120523
  Transmission Date: 20120825
  Serious: No
  Sender: FDA-Public Use
  Company Number: None

PATIENT
  Age: 72 Year
  Sex: Male
  Weight: 108.8633 kg

DRUGS (1)
  1. PRADAXA [Suspect]
     Indication: ATRIAL FIBRILLATION
     Dosage: 150MG BID ORAL  NOV 12 - MAR 12
     Route: 048

REACTIONS (3)
  - MYOCARDIAL INFARCTION [None]
  - LITHOTRIPSY [None]
  - BLOOD URINE [None]
